FAERS Safety Report 9710532 (Version 1)
Quarter: 2013Q4

REPORT INFORMATION
  Report Type: Spontaneous
  Country: US (occurrence: US)
  Receive Date: 20131126
  Receipt Date: 20131126
  Transmission Date: 20140711
  Serious: No
  Sender: FDA-Public Use
  Company Number: US-BRISTOL-MYERS SQUIBB COMPANY-18871327

PATIENT
  Age: 46 Year
  Sex: Female
  Weight: 89.79 kg

DRUGS (11)
  1. BYDUREON [Suspect]
     Dates: end: 20130428
  2. BYETTA [Suspect]
     Dosage: DOSE INCREASED TO 10MCG,RESTARTED ON 06MAY13
  3. METFORMIN [Concomitant]
  4. LISINOPRIL [Concomitant]
  5. SIMVASTATIN [Concomitant]
  6. ZANTAC [Concomitant]
  7. TOPIRAMATE [Concomitant]
  8. DEPAKOTE [Concomitant]
     Dosage: 3 TABS
  9. COQ10 [Concomitant]
  10. CENTRUM [Concomitant]
  11. MULTIVITAMIN [Concomitant]

REACTIONS (3)
  - Migraine [Unknown]
  - Nausea [Unknown]
  - Weight decreased [Unknown]
